FAERS Safety Report 11341842 (Version 3)
Quarter: 2015Q4

REPORT INFORMATION
  Report Type: Spontaneous
  Country: US (occurrence: US)
  Receive Date: 20150805
  Receipt Date: 20151019
  Transmission Date: 20160304
  Serious: Yes (Hospitalization, Disabling, Other)
  Sender: FDA-Public Use
  Company Number: US-PFIZER INC-2015250070

PATIENT
  Age: 78 Year
  Sex: Female
  Weight: 104 kg

DRUGS (20)
  1. ARTHROTEC [Suspect]
     Active Substance: DICLOFENAC SODIUM\MISOPROSTOL
     Dosage: 200 MCG/50 MG X 2 DAILY
     Dates: start: 2003
  2. VITAMIN B12 [Concomitant]
     Active Substance: CYANOCOBALAMIN
     Dosage: UNK
  3. LASIX [Concomitant]
     Active Substance: FUROSEMIDE
     Dosage: 40 MG, UNK
  4. ARTHROTEC [Suspect]
     Active Substance: DICLOFENAC SODIUM\MISOPROSTOL
     Indication: ARTHRITIS
     Dosage: 200 MCG/50 MG
  5. LYRICA [Suspect]
     Active Substance: PREGABALIN
     Indication: NEUROPATHY PERIPHERAL
     Dosage: 75 MG, 2X/DAY
  6. VITAMIN B6 [Concomitant]
     Active Substance: PYRIDOXINE HYDROCHLORIDE
     Dosage: UNK
  7. NOVOLOG [Concomitant]
     Active Substance: INSULIN ASPART
     Dosage: 18 IU, BEFORE EACH MEAL
  8. ZETIA [Concomitant]
     Active Substance: EZETIMIBE
     Dosage: 10 MG, UNK
  9. VITAMIN B12 [Concomitant]
     Active Substance: CYANOCOBALAMIN
     Dosage: 120 UNK, UNK
  10. ASPRIN [Concomitant]
     Active Substance: ASPIRIN
     Dosage: LOW DOSE
  11. VISTARIL [Concomitant]
     Active Substance: HYDROXYZINE PAMOATE
     Dosage: 5 MG, UNK
  12. LANTUS [Concomitant]
     Active Substance: INSULIN GLARGINE
     Dosage: 18 IU, DAILY (BEDTIME)
  13. NORVASC [Concomitant]
     Active Substance: AMLODIPINE BESYLATE
     Dosage: 5 MG, UNK
  14. SYNTHROID [Concomitant]
     Active Substance: LEVOTHYROXINE SODIUM
     Dosage: 150 MG, UNK
  15. LIPITOR [Concomitant]
     Active Substance: ATORVASTATIN CALCIUM
     Dosage: 10 MG, UNK
  16. NEXIUM [Concomitant]
     Active Substance: ESOMEPRAZOLE MAGNESIUM
     Dosage: 40 MG, UNK
  17. FOLIC ACID. [Concomitant]
     Active Substance: FOLIC ACID
     Dosage: 1 MG, UNK
  18. ALLEGRA [Concomitant]
     Active Substance: FEXOFENADINE HYDROCHLORIDE
     Dosage: 180 MG, UNK
  19. CALCORT [Concomitant]
     Active Substance: DEFLAZACORT
     Indication: MINERAL SUPPLEMENTATION
  20. ASTRO PRO [Concomitant]
     Dosage: UNK

REACTIONS (4)
  - Arthropathy [Unknown]
  - Arthropathy [Unknown]
  - Bone disorder [Not Recovered/Not Resolved]
  - Renal disorder [Not Recovered/Not Resolved]

NARRATIVE: CASE EVENT DATE: 2001
